FAERS Safety Report 10154349 (Version 1)
Quarter: 2014Q2

REPORT INFORMATION
  Report Type: Spontaneous
  Country: US (occurrence: US)
  Receive Date: 20140506
  Receipt Date: 20140506
  Transmission Date: 20141212
  Serious: No
  Sender: FDA-Public Use
  Company Number: US-PFIZER INC-2014123041

PATIENT
  Age: 52 Year
  Sex: Female
  Weight: 59 kg

DRUGS (3)
  1. LYRICA [Suspect]
     Indication: FIBROMYALGIA
     Dosage: 75 MG IN MORNING AND EVENING AND 150 MG IN THE NIGHT, 3X/DAY
  2. LYRICA [Suspect]
     Indication: NEUROPATHY PERIPHERAL
  3. AROMASIN [Concomitant]
     Indication: BREAST CANCER FEMALE
     Dosage: 25 MG, DAILY

REACTIONS (1)
  - Pain [Unknown]
